FAERS Safety Report 7706411-0 (Version None)
Quarter: 2011Q3

REPORT INFORMATION
  Report Type: 
  Country: None (occurrence: None)
  Receive Date: 20110824
  Receipt Date: 20110816
  Transmission Date: 20111222
  Serious: Yes (Other)
  Sender: FDA-Public Use
  Company Number: CA-JNJFOC-20110808147

PATIENT
  Sex: Female
  Weight: 68.8 kg

DRUGS (5)
  1. IMURAN [Concomitant]
     Dosage: 3.5 TAB
     Route: 048
  2. REMICADE [Suspect]
     Route: 042
     Dates: start: 20110816
  3. BUPROPION HCL [Concomitant]
     Route: 048
  4. REMICADE [Suspect]
     Indication: COLITIS ULCERATIVE
     Route: 042
     Dates: start: 20090923
  5. REMICADE [Suspect]
     Route: 042
     Dates: start: 20110701

REACTIONS (3)
  - DYSPNOEA [None]
  - CHEST PAIN [None]
  - COUGH [None]
